FAERS Safety Report 24608280 (Version 2)
Quarter: 2025Q1

REPORT INFORMATION
  Report Type: Spontaneous
  Country: GB (occurrence: GB)
  Receive Date: 20241112
  Receipt Date: 20250129
  Transmission Date: 20250408
  Serious: Yes (Other)
  Sender: PFIZER
  Company Number: None

PATIENT
  Age: 34 Year
  Sex: Male
  Weight: 150 kg

DRUGS (1)
  1. ABROCITINIB [Suspect]
     Active Substance: ABROCITINIB
     Indication: Eczema
     Dosage: 200 MG, 1X/DAY
     Dates: start: 20240321

REACTIONS (1)
  - Eczema herpeticum [Recovering/Resolving]

NARRATIVE: CASE EVENT DATE: 20241001
